FAERS Safety Report 20751866 (Version 4)
Quarter: 2022Q4

REPORT INFORMATION
  Report Type: Report from Study
  Country: US (occurrence: US)
  Receive Date: 20220426
  Receipt Date: 20221103
  Transmission Date: 20230113
  Serious: Yes (Other)
  Sender: FDA-Public Use
  Company Number: US-TAKEDA-US202025983

PATIENT
  Age: 60 Year
  Sex: Female

DRUGS (3)
  1. HUMAN IMMUNOGLOBULIN G [Suspect]
     Active Substance: HUMAN IMMUNOGLOBULIN G
     Indication: Primary immunodeficiency syndrome
     Dosage: 15 GRAM, 1/WEEK
     Route: 058
  2. HUMAN IMMUNOGLOBULIN G [Suspect]
     Active Substance: HUMAN IMMUNOGLOBULIN G
     Dosage: 18 GRAM, 1/WEEK
     Route: 058
  3. XELJANZ [Suspect]
     Active Substance: TOFACITINIB CITRATE
     Indication: Arthritis
     Route: 065

REACTIONS (14)
  - Basedow^s disease [Unknown]
  - Pneumonia [Unknown]
  - Oropharyngeal discomfort [Unknown]
  - Throat clearing [Unknown]
  - Cough [Unknown]
  - Arthritis [Unknown]
  - Traumatic shock [Unknown]
  - Chest discomfort [Unknown]
  - Emotional distress [Unknown]
  - Bronchitis [Not Recovered/Not Resolved]
  - Illness [Unknown]
  - Drug hypersensitivity [Unknown]
  - Drug ineffective [Unknown]
  - Inability to afford medication [Unknown]

NARRATIVE: CASE EVENT DATE: 20200810
